FAERS Safety Report 15563325 (Version 2)
Quarter: 2018Q4

REPORT INFORMATION
  Report Type: Spontaneous
  Country: DE (occurrence: DE)
  Receive Date: 20181029
  Receipt Date: 20181113
  Transmission Date: 20190205
  Serious: Yes (Hospitalization, Other)
  Sender: FDA-Public Use
  Company Number: DE-AMGEN-DEUSP2018150860

PATIENT
  Age: 61 Year
  Sex: Female
  Weight: 89 kg

DRUGS (26)
  1. RAMIPRIL 1A PHARMA [Concomitant]
     Active Substance: RAMIPRIL
     Dosage: 5 MG, UNK
  2. FOSRENOL [Concomitant]
     Active Substance: LANTHANUM CARBONATE
     Dosage: 1000 MG, TID
  3. METOPROLOL SUCCINATE. [Concomitant]
     Active Substance: METOPROLOL SUCCINATE
     Dosage: 47.5 MG, BID
  4. PANTOPRAZOL [Concomitant]
     Active Substance: PANTOPRAZOLE SODIUM
     Dosage: 20 MG, QD
  5. BICANORM [Concomitant]
     Active Substance: SODIUM BICARBONATE
     Dosage: UNK UNK, QD
  6. SILAPO [Concomitant]
     Dosage: UNK, 3 TIMES/WK
     Route: 042
  7. ASA [Concomitant]
     Active Substance: ASPIRIN
     Dosage: 100 MG, QD
  8. PARSABIV [Suspect]
     Active Substance: ETELCALCETIDE HYDROCHLORIDE
     Indication: HYPERPARATHYROIDISM SECONDARY
     Dosage: 5 MG, 3 TIMES/WK
     Route: 042
     Dates: start: 20181017, end: 20181017
  9. PARSABIV [Suspect]
     Active Substance: ETELCALCETIDE HYDROCHLORIDE
     Dosage: 2.5 MG, UNK
     Route: 042
     Dates: start: 20181022, end: 2018
  10. HEXAL [Concomitant]
     Dosage: 100 MG, QD
  11. SIMVASTATIN-RATIOPHARM [Concomitant]
     Active Substance: SIMVASTATIN
     Dosage: 40 MG, QD
  12. ISDN-RATIOPHARM [Concomitant]
     Dosage: 20 MG, TID, ON HD DAY QD
  13. HUMALOG [Concomitant]
     Active Substance: INSULIN LISPRO
     Dosage: 3 ML, UNK
  14. FERMED [Concomitant]
     Dosage: 100 MG, Q2WK
     Route: 042
  15. METOPROLOL. [Concomitant]
     Active Substance: METOPROLOL
     Dosage: 95 MG, BID
  16. MELATONIN [Concomitant]
     Active Substance: MELATONIN
     Dosage: 2 MG, QD
  17. HEPARIN SODIUM. [Concomitant]
     Active Substance: HEPARIN SODIUM
     Dosage: 25000 IU, UNK
  18. CIRCADIN [Concomitant]
     Active Substance: MELATONIN
     Dosage: 2 MG, QD
  19. DEKRISTOL [Concomitant]
     Active Substance: CHOLECALCIFEROL
     Dosage: 20000 UNK, 2 TIMES/WK
     Dates: start: 20161202
  20. NOVAMINSULFON [Concomitant]
     Active Substance: METAMIZOLE
     Dosage: 500 MG, AS NECESSARY (20 DROPS)
  21. VITAMIN B12 [Concomitant]
     Active Substance: CYANOCOBALAMIN
     Dosage: UNK
  22. PARSABIV [Suspect]
     Active Substance: ETELCALCETIDE HYDROCHLORIDE
     Dosage: 5 MG, 3 TIMES/WK
     Route: 042
     Dates: start: 2018
  23. CALCIUM ACETATE NEPHRO [Concomitant]
     Active Substance: CALCIUM ACETATE
     Dosage: 500 MG, TID
     Dates: start: 20171113
  24. NITROLINGUAL [Concomitant]
     Active Substance: NITROGLYCERIN
     Dosage: 1 DF, UNK
  25. HUMINSULIN BASAL (NPH) [Concomitant]
     Dosage: 3 ML, BID
  26. NATRIUM HYDROGENCARBONATE [Concomitant]
     Dosage: UNK, QD

REACTIONS (3)
  - Pulmonary congestion [Unknown]
  - Atrial fibrillation [Recovered/Resolved]
  - Oedema peripheral [Unknown]

NARRATIVE: CASE EVENT DATE: 20181017
